FAERS Safety Report 6189504-1 (Version None)
Quarter: 2009Q2

REPORT INFORMATION
  Report Type: 
  Country: None (occurrence: None)
  Receive Date: 20090512
  Receipt Date: 20090430
  Transmission Date: 20091009
  Serious: Yes (Hospitalization)
  Sender: FDA-Public Use
  Company Number: 090501-0000682

PATIENT
  Age: 48 Year
  Sex: Female

DRUGS (4)
  1. INDOCIN [Suspect]
     Indication: RHEUMATOID ARTHRITIS
  2. SULFASALAZINE [Suspect]
     Indication: RHEUMATOID ARTHRITIS
  3. IBUPROFEN [Suspect]
     Indication: RHEUMATOID ARTHRITIS
  4. METHOTREXATE [Suspect]
     Indication: RHEUMATOID ARTHRITIS

REACTIONS (2)
  - STEVENS-JOHNSON SYNDROME [None]
  - TOXIC EPIDERMAL NECROLYSIS [None]
